FAERS Safety Report 12525736 (Version 1)
Quarter: 2016Q3

REPORT INFORMATION
  Report Type: Spontaneous
  Country: US (occurrence: US)
  Receive Date: 20160705
  Receipt Date: 20160705
  Transmission Date: 20161109
  Serious: Yes (Other)
  Sender: FDA-Public Use
  Company Number: US-ZYDUS-011488

PATIENT
  Age: 42 Year
  Sex: Male

DRUGS (5)
  1. BUDESONIDE/FORMOTEROL FUMARATE [Interacting]
     Active Substance: BUDESONIDE\FORMOTEROL FUMARATE
     Indication: ASTHMA
     Route: 065
  2. ETHANOL [Interacting]
     Active Substance: ALCOHOL
     Indication: PRODUCT USED FOR UNKNOWN INDICATION
     Route: 065
  3. OXAZEPAM. [Suspect]
     Active Substance: OXAZEPAM
     Indication: PRODUCT USED FOR UNKNOWN INDICATION
     Route: 065
  4. PAROXETINE. [Suspect]
     Active Substance: PAROXETINE
     Indication: STRESS
     Route: 065
  5. PAROXETINE. [Interacting]
     Active Substance: PAROXETINE
     Indication: STRESS
     Route: 065

REACTIONS (11)
  - Memory impairment [None]
  - Tremor [None]
  - Feeling of body temperature change [None]
  - Drug interaction [Unknown]
  - Physical assault [Unknown]
  - Intentional product misuse [Unknown]
  - Intentional self-injury [Unknown]
  - Aggression [Unknown]
  - Akathisia [Unknown]
  - Homicide [Unknown]
  - Drug level increased [None]
